FAERS Safety Report 6176742-7 (Version None)
Quarter: 2009Q2

REPORT INFORMATION
  Report Type: 
  Country: None (occurrence: None)
  Receive Date: 20090501
  Receipt Date: 20090129
  Transmission Date: 20091009
  Serious: Yes (Other)
  Sender: FDA-Public Use
  Company Number: US-PFIZER INC-2009163491

PATIENT
  Sex: Male
  Weight: 79.365 kg

DRUGS (7)
  1. ZOLOFT [Suspect]
     Indication: ANXIETY
     Dates: start: 20080801
  2. ZOLOFT [Suspect]
     Indication: POST-TRAUMATIC STRESS DISORDER
  3. NIASPAN [Concomitant]
     Dosage: UNK
  4. VALSARTAN [Concomitant]
     Dosage: UNK
  5. ACETYLSALICYLIC ACID [Concomitant]
     Dosage: UNK
  6. VYTORIN [Concomitant]
     Dosage: UNK
  7. PROTONIX [Concomitant]
     Dosage: UNK

REACTIONS (9)
  - ANGER [None]
  - ANXIETY [None]
  - AORTIC ANEURYSM [None]
  - DRUG INEFFECTIVE [None]
  - EXPRESSIVE LANGUAGE DISORDER [None]
  - FEELING ABNORMAL [None]
  - INSOMNIA [None]
  - IRRITABILITY [None]
  - WITHDRAWAL SYNDROME [None]
